FAERS Safety Report 6812691-6 (Version None)
Quarter: 2010Q3

REPORT INFORMATION
  Report Type: 
  Country: None (occurrence: None)
  Receive Date: 20100701
  Receipt Date: 20100625
  Transmission Date: 20110219
  Serious: Yes (Hospitalization)
  Sender: FDA-Public Use
  Company Number: RS-ROCHE-711734

PATIENT
  Age: 37 Year

DRUGS (2)
  1. PEG-INTRON [Suspect]
     Route: 065
  2. RIBAVIRIN [Suspect]
     Route: 065

REACTIONS (2)
  - SKIN HAEMORRHAGE [None]
  - THROMBOCYTOPENIA [None]
